FAERS Safety Report 19315309 (Version 1)
Quarter: 2021Q2

REPORT INFORMATION
  Report Type: Spontaneous
  Country: US (occurrence: US)
  Receive Date: 20210527
  Receipt Date: 20210527
  Transmission Date: 20210717
  Serious: No
  Sender: FDA-Public Use
  Company Number: US-SA-2021SA173717

PATIENT
  Age: 70 Year
  Sex: Female

DRUGS (1)
  1. DUPIXENT [Suspect]
     Active Substance: DUPILUMAB
     Indication: ASTHMA
     Dosage: UNK UNK, QOW
     Route: 058
     Dates: start: 20210219

REACTIONS (3)
  - Ocular hyperaemia [Recovering/Resolving]
  - Product dose omission issue [Unknown]
  - Injection site irritation [Recovering/Resolving]

NARRATIVE: CASE EVENT DATE: 2021
